FAERS Safety Report 14931002 (Version 1)
Quarter: 2018Q2

REPORT INFORMATION
  Report Type: Report from Study
  Country: CA (occurrence: CA)
  Receive Date: 20180524
  Receipt Date: 20180524
  Transmission Date: 20180711
  Serious: Yes (Death, Hospitalization, Other)
  Sender: FDA-Public Use
  Company Number: CA-BRISTOL-MYERS SQUIBB COMPANY-BMS-2018-020218

PATIENT
  Sex: Female

DRUGS (1)
  1. NIVOLUMAB [Suspect]
     Active Substance: NIVOLUMAB
     Indication: GASTRIC CANCER
     Dosage: 3 MG/KG, Q2WK
     Route: 042
     Dates: start: 20180219, end: 20180219

REACTIONS (5)
  - Pain [Not Recovered/Not Resolved]
  - Malignant neoplasm progression [Unknown]
  - Ascites [Not Recovered/Not Resolved]
  - Product use in unapproved indication [Unknown]
  - Death [Fatal]
